FAERS Safety Report 19975397 (Version 5)
Quarter: 2022Q3

REPORT INFORMATION
  Report Type: Spontaneous
  Country: US (occurrence: US)
  Receive Date: 20211020
  Receipt Date: 20220720
  Transmission Date: 20221027
  Serious: No
  Sender: FDA-Public Use
  Company Number: US-PFIZER INC-202101028717

PATIENT
  Age: 63 Year
  Sex: Female

DRUGS (4)
  1. IBRANCE [Suspect]
     Active Substance: PALBOCICLIB
     Dosage: 125 MG
     Dates: start: 20210601
  2. IBRANCE [Suspect]
     Active Substance: PALBOCICLIB
     Dosage: 125 MG
     Dates: start: 20210924
  3. IBRANCE [Suspect]
     Active Substance: PALBOCICLIB
     Dosage: 125 MG
     Dates: start: 20211001
  4. IBRANCE [Suspect]
     Active Substance: PALBOCICLIB
     Dosage: 125 MG
     Dates: start: 20211020

REACTIONS (13)
  - Product dose omission issue [Unknown]
  - White blood cell count decreased [Recovering/Resolving]
  - Hot flush [Unknown]
  - Dizziness [Unknown]
  - Hypoaesthesia [Unknown]
  - Fatigue [Unknown]
  - Dry skin [Unknown]
  - Pyrexia [Unknown]
  - Rash [Unknown]
  - COVID-19 [Unknown]
  - Joint swelling [Unknown]
  - Stomatitis [Recovering/Resolving]
  - Spider vein [Unknown]

NARRATIVE: CASE EVENT DATE: 20220110
